FAERS Safety Report 4801913-9 (Version None)
Quarter: 2005Q4

REPORT INFORMATION
  Report Type: 
  Country: None (occurrence: None)
  Receive Date: 20051011
  Receipt Date: 20050928
  Transmission Date: 20060501
  Serious: Yes (Other)
  Sender: FDA-Public Use
  Company Number: 2005136075

PATIENT
  Age: 90 Year
  Sex: Female
  Weight: 68.4932 kg

DRUGS (9)
  1. LIPITOR [Suspect]
     Indication: BLOOD CHOLESTEROL
     Dosage: 10 MG (10 MG, 1 IN 1 D), ORAL
     Route: 048
  2. DEMADEX [Concomitant]
  3. GLUCOPHAGE [Concomitant]
  4. TYLENOL [Concomitant]
  5. ALL OTHER THERAPEUTIC PRODUCTS (ALL OTHER THERAPEUTIC PRODUCTS) [Concomitant]
  6. ARICEPT [Concomitant]
  7. INSULIN [Concomitant]
  8. VITAMIN E [Concomitant]
  9. VITAMIN C (VITAMIN C) [Concomitant]

REACTIONS (3)
  - BLOOD PRESSURE INCREASED [None]
  - DEMENTIA ALZHEIMER'S TYPE [None]
  - LIVER DISORDER [None]
